FAERS Safety Report 8505011-2 (Version None)
Quarter: 2012Q3

REPORT INFORMATION
  Report Type: 
  Country: None (occurrence: None)
  Receive Date: 20120712
  Receipt Date: 20120703
  Transmission Date: 20120928
  Serious: Yes (Hospitalization)
  Sender: FDA-Public Use
  Company Number: US-FRI-1000031270

PATIENT
  Age: 57 Year
  Sex: Female

DRUGS (11)
  1. VIIBRYD [Suspect]
     Dosage: 40 MG
     Route: 048
     Dates: start: 20120412, end: 20120420
  2. VITAMIN D [Concomitant]
  3. FISH OIL [Concomitant]
  4. HYDROCHLOROTHIAZIDE [Concomitant]
     Indication: HYPERTENSION
     Dosage: 12.5 MG
  5. MULTI-VITAMIN [Concomitant]
  6. DIOVAN [Concomitant]
     Indication: HYPERTENSION
     Dosage: 160 MG
  7. MAGNESIUM SULFATE [Concomitant]
  8. ASCORBIC ACID [Concomitant]
  9. VIIBRYD [Suspect]
     Indication: DEPRESSION
     Dosage: 10 MG
     Route: 048
     Dates: start: 20120329, end: 20120404
  10. VIIBRYD [Suspect]
     Dosage: 20 MG
     Route: 048
     Dates: start: 20120405, end: 20120411
  11. ATENOLOL [Concomitant]
     Indication: HYPERTENSION
     Dosage: 25 MG

REACTIONS (3)
  - BLOOD PRESSURE INCREASED [None]
  - ELECTROCARDIOGRAM ABNORMAL [None]
  - CHEST DISCOMFORT [None]
